FAERS Safety Report 8357794-2 (Version None)
Quarter: 2012Q2

REPORT INFORMATION
  Report Type: 
  Country: None (occurrence: None)
  Receive Date: 20120514
  Receipt Date: 20110411
  Transmission Date: 20120825
  Serious: No
  Sender: FDA-Public Use
  Company Number: US-ALEXION-A201100514

PATIENT
  Sex: Female
  Weight: 269 kg

DRUGS (10)
  1. PROZAC [Concomitant]
     Indication: DEPRESSION
     Dosage: 40 MG QD
  2. SOLIRIS [Suspect]
     Indication: PAROXYSMAL NOCTURNAL HAEMOGLOBINURIA
     Dosage: 600 MG QW
     Route: 042
     Dates: start: 20100401
  3. SOLIRIS [Suspect]
     Dosage: 900 MG, Q2W
     Route: 042
     Dates: start: 20100101
  4. HYDROCORTISONE [Concomitant]
     Indication: ADDISON'S DISEASE
     Dosage: 20 MG QD
  5. SYNTHROID [Concomitant]
     Indication: HYPOTHYROIDISM
     Dosage: 175 MCG QD
  6. METFORMIN HCL [Concomitant]
     Indication: DIABETES MELLITUS
     Dosage: 500 MG BID
  7. FOSAMAX [Concomitant]
     Indication: OSTEOPOROSIS
     Dosage: 70 MG QW
  8. FLORINEF [Concomitant]
     Indication: ADDISON'S DISEASE
     Dosage: 0.1 MG QD
  9. QVAR 40 [Concomitant]
     Indication: ASTHMA
     Dosage: 80 MG 2 PUFFS BID
  10. GLIPIZIDE [Concomitant]
     Indication: DIABETES MELLITUS
     Dosage: 5 MG QD

REACTIONS (1)
  - WEIGHT DECREASED [None]
